FAERS Safety Report 14114540 (Version 1)
Quarter: 2017Q4

REPORT INFORMATION
  Report Type: Spontaneous
  Country: US (occurrence: US)
  Receive Date: 20171023
  Receipt Date: 20171023
  Transmission Date: 20180321
  Serious: No
  Sender: FDA-Public Use
  Company Number: US-PFIZER INC-2017455183

PATIENT
  Age: 77 Year
  Sex: Female
  Weight: 100 kg

DRUGS (3)
  1. LEVOTHYROXINE SODIUM. [Suspect]
     Active Substance: LEVOTHYROXINE SODIUM
     Indication: HYPOTHYROIDISM
     Dosage: 112 UG, UNK
     Route: 048
  2. TIROSINT [Suspect]
     Active Substance: LEVOTHYROXINE SODIUM
     Indication: HYPOTHYROIDISM
     Dosage: 112 UG, 1X/DAY
     Route: 048
     Dates: start: 201709
  3. LISINOPRIL. [Concomitant]
     Active Substance: LISINOPRIL
     Dosage: 20 MG, UNK (EVERY NIGHT)

REACTIONS (5)
  - Fatigue [Unknown]
  - Inappropriate schedule of drug administration [Unknown]
  - Lethargy [Unknown]
  - Diarrhoea [Unknown]
  - Exercise lack of [Unknown]

NARRATIVE: CASE EVENT DATE: 201709
